FAERS Safety Report 4697196-3 (Version None)
Quarter: 2005Q2

REPORT INFORMATION
  Report Type: 
  Country: None (occurrence: None)
  Receive Date: 20050621
  Receipt Date: 20050621
  Transmission Date: 20051028
  Serious: Yes (Other)
  Sender: FDA-Public Use
  Company Number: None

PATIENT
  Age: 28 Year
  Sex: Female
  Weight: 61.2356 kg

DRUGS (1)
  1. LUPRON [Suspect]
     Indication: BLOOD LUTEINISING HORMONE INCREASED
     Dosage: 2.5 ML     DAY   SUBCUTANEO
     Route: 058
     Dates: start: 20050407, end: 20050420

REACTIONS (5)
  - DEAFNESS [None]
  - DIZZINESS [None]
  - NAUSEA [None]
  - VERTIGO [None]
  - VOMITING [None]
